FAERS Safety Report 4647324-0 (Version None)
Quarter: 2005Q2

REPORT INFORMATION
  Report Type: 
  Country: None (occurrence: None)
  Receive Date: 20050428
  Receipt Date: 20030401
  Transmission Date: 20051028
  Serious: Yes (Death)
  Sender: FDA-Public Use
  Company Number: US-BRISTOL-MYERS SQUIBB COMPANY-12227047

PATIENT
  Age: 75 Year
  Sex: Male
  Weight: 74 kg

DRUGS (3)
  1. PACLITAXEL [Suspect]
     Indication: BLADDER CANCER
     Dosage: INITIAL DOSE ON 23-JAN-2003
     Dates: start: 20030320, end: 20030320
  2. CISPLATIN [Suspect]
     Indication: BLADDER CANCER
     Dosage: INITIAL DOSE ON 23-JAN-2003
     Dates: start: 20030313, end: 20030313
  3. GEMCITABINE [Suspect]
     Indication: BLADDER CANCER
     Dosage: INITIAL DOSE ON 23-JAN-2003
     Dates: start: 20030320, end: 20030320

REACTIONS (2)
  - CACHEXIA [None]
  - CIRCULATORY COLLAPSE [None]
